FAERS Safety Report 4823975-5 (Version None)
Quarter: 2005Q4

REPORT INFORMATION
  Report Type: 
  Country: None (occurrence: None)
  Receive Date: 20051109
  Receipt Date: 20051031
  Transmission Date: 20060501
  Serious: Yes (Hospitalization)
  Sender: FDA-Public Use
  Company Number: GB-JNJFOC-20051100070

PATIENT
  Age: 46 Year
  Sex: Female

DRUGS (2)
  1. REMICADE [Suspect]
     Indication: PSORIASIS
     Dosage: 6 INFUSIONS
     Route: 042
  2. METHOTREXATE [Concomitant]
     Route: 065

REACTIONS (2)
  - HISTONE ANTIBODY POSITIVE [None]
  - PERICARDITIS [None]
